FAERS Safety Report 12099970 (Version 1)
Quarter: 2016Q1

REPORT INFORMATION
  Report Type: Spontaneous
  Country: US (occurrence: None)
  Receive Date: 20160219
  Receipt Date: 20160219
  Transmission Date: 20160526
  Serious: Yes (Disabling)
  Sender: FDA-Public Use
  Company Number: None

PATIENT
  Age: 47 Year
  Sex: Female
  Weight: 58.06 kg

DRUGS (6)
  1. ACETYL L CARNITINE [Concomitant]
  2. AUBAGIO [Suspect]
     Active Substance: TERIFLUNOMIDE
     Indication: MULTIPLE SCLEROSIS
     Dosage: 1 PILL ONCE DAILY TAKEN BY MOUTH
     Route: 048
     Dates: start: 20150312, end: 20160131
  3. CALCIUM [Concomitant]
     Active Substance: CALCIUM
  4. ALPHA LAPOIC AVID [Concomitant]
  5. MULTIVITAMIN [Concomitant]
     Active Substance: VITAMINS
  6. VITAMIN D [Concomitant]
     Active Substance: CHOLECALCIFEROL

REACTIONS (3)
  - Acarodermatitis [None]
  - Rash [None]
  - Pruritus [None]
